FAERS Safety Report 10690355 (Version 1)
Quarter: 2015Q1

REPORT INFORMATION
  Report Type: Spontaneous
  Country: US (occurrence: None)
  Receive Date: 20150102
  Receipt Date: 20150102
  Transmission Date: 20150720
  Serious: No
  Sender: FDA-Public Use
  Company Number: None

PATIENT
  Age: 81 Year
  Sex: Male

DRUGS (2)
  1. TIMOLOL 0.5% SANDOZ [Suspect]
     Active Substance: TIMOLOL
     Indication: EXFOLIATION GLAUCOMA
     Dosage: ONE DROP TWICE DAILY INTO THE EYE
     Dates: start: 20141201, end: 20141218
  2. TIMOLOL 0.5% SANDOZ [Suspect]
     Active Substance: TIMOLOL
     Indication: EXFOLIATION SYNDROME
     Dosage: ONE DROP TWICE DAILY INTO THE EYE
     Dates: start: 20141201, end: 20141218

REACTIONS (2)
  - Dermatitis [None]
  - Drug hypersensitivity [None]

NARRATIVE: CASE EVENT DATE: 20141215
